FAERS Safety Report 11610660 (Version 1)
Quarter: 2015Q4

REPORT INFORMATION
  Report Type: Spontaneous
  Country: US (occurrence: None)
  Receive Date: 20151007
  Receipt Date: 20151007
  Transmission Date: 20160304
  Serious: Yes (Hospitalization)
  Sender: FDA-Public Use
  Company Number: None

PATIENT
  Age: 75 Year
  Sex: Female

DRUGS (8)
  1. PRAVASTATIN [Concomitant]
     Active Substance: PRAVASTATIN\PRAVASTATIN SODIUM
  2. DICYCLOMINE [Concomitant]
     Active Substance: DICYCLOMINE HYDROCHLORIDE
  3. SOTALOL. [Suspect]
     Active Substance: SOTALOL
     Indication: ARRHYTHMIA
     Route: 048
     Dates: start: 20150916, end: 20151003
  4. WARFARIN [Concomitant]
     Active Substance: WARFARIN
  5. LEVOTHYROXINE. [Concomitant]
     Active Substance: LEVOTHYROXINE
  6. FLONASE [Concomitant]
     Active Substance: FLUTICASONE PROPIONATE
  7. TRIAMTERENE AND HYDROCHLOROTHIAZIDE [Concomitant]
     Active Substance: HYDROCHLOROTHIAZIDE\TRIAMTERENE
  8. LOSARTAN. [Concomitant]
     Active Substance: LOSARTAN

REACTIONS (2)
  - Arrhythmia [None]
  - Product substitution issue [None]

NARRATIVE: CASE EVENT DATE: 20151004
